FAERS Safety Report 7406926-9 (Version None)
Quarter: 2011Q2

REPORT INFORMATION
  Report Type: 
  Country: None (occurrence: None)
  Receive Date: 20110411
  Receipt Date: 20110401
  Transmission Date: 20111010
  Serious: Yes (Hospitalization)
  Sender: FDA-Public Use
  Company Number: US-AMGEN-USASP2010010064

PATIENT
  Age: 47 Year
  Sex: Female

DRUGS (1)
  1. ENBREL [Suspect]
     Indication: PSORIASIS
     Dosage: 50 MG, 2 TIMES/WK
     Dates: start: 20040301

REACTIONS (8)
  - SKIN ULCER [None]
  - OEDEMA PERIPHERAL [None]
  - BLOOD TEST ABNORMAL [None]
  - ERYTHEMA [None]
  - FEELING HOT [None]
  - VARICOPHLEBITIS [None]
  - CELLULITIS [None]
  - PAIN IN EXTREMITY [None]
